FAERS Safety Report 4925793-6 (Version None)
Quarter: 2006Q1

REPORT INFORMATION
  Report Type: 
  Country: None (occurrence: None)
  Receive Date: 20060228
  Receipt Date: 20050322
  Transmission Date: 20060701
  Serious: No
  Sender: FDA-Public Use
  Company Number: US-GLAXOSMITHKLINE-A0550880A

PATIENT
  Age: 54 Year
  Sex: Female

DRUGS (13)
  1. LAMICTAL [Suspect]
     Indication: BIPOLAR DISORDER
     Dosage: 375MG PER DAY
     Route: 048
     Dates: end: 20050320
  2. HYDROCHLOROTHIAZIDE [Concomitant]
  3. CELEBREX [Concomitant]
  4. PRILOSEC [Concomitant]
  5. ESTRADIOL [Concomitant]
  6. SINGULAIR [Concomitant]
  7. ADVAIR DISKUS 100/50 [Concomitant]
  8. SPIRIVA [Concomitant]
  9. MAXAIR [Concomitant]
  10. ALLEGRA [Concomitant]
  11. MUCOFEN [Concomitant]
  12. DEXEDRINE [Concomitant]
  13. COZAAR [Concomitant]

REACTIONS (3)
  - ANGIOPATHY [None]
  - DRY SKIN [None]
  - RASH [None]
